FAERS Safety Report 18647525 (Version 1)
Quarter: 2020Q4

REPORT INFORMATION
  Report Type: Spontaneous
  Country: US (occurrence: US)
  Receive Date: 20201222
  Receipt Date: 20201222
  Transmission Date: 20210114
  Serious: No
  Sender: FDA-Public Use
  Company Number: US-RECKITT BENCKISER HEALTHCARE INT LIMITED-RB-80729-2020

PATIENT
  Age: 23 Year
  Sex: Female

DRUGS (1)
  1. DELSYM [Suspect]
     Active Substance: DEXTROMETHORPHAN
     Indication: NASOPHARYNGITIS
     Dosage: 30 MILLILITER, BID
     Route: 048
     Dates: start: 20191206

REACTIONS (2)
  - Disorientation [Recovering/Resolving]
  - Accidental exposure to product [Recovering/Resolving]
